FAERS Safety Report 5049298-X (Version None)
Quarter: 2006Q3

REPORT INFORMATION
  Report Type: 
  Country: None (occurrence: None)
  Receive Date: 20060712
  Receipt Date: 20060707
  Transmission Date: 20061208
  Serious: Yes (Life-Threatening)
  Sender: FDA-Public Use
  Company Number: 2006CG01204

PATIENT
  Sex: Male
  Weight: 3.2 kg

DRUGS (4)
  1. XYLOCAINE [Suspect]
     Indication: LOCAL ANAESTHESIA
     Route: 064
     Dates: start: 20050201, end: 20050216
  2. ANTASOL [Suspect]
     Route: 064
     Dates: start: 20050215, end: 20050215
  3. CUTIDINE [Concomitant]
     Route: 064
     Dates: start: 20060215, end: 20060215
  4. NARCAN [Concomitant]
     Dates: start: 20050216, end: 20050216

REACTIONS (8)
  - APGAR SCORE LOW [None]
  - CONVULSION [None]
  - CONVULSION NEONATAL [None]
  - DRUG EXPOSURE DURING PREGNANCY [None]
  - HYPOTONIA NEONATAL [None]
  - INFANTILE APNOEIC ATTACK [None]
  - MUSCLE RIGIDITY [None]
  - MYDRIASIS [None]
